FAERS Safety Report 21108020 (Version 2)
Quarter: 2022Q3

REPORT INFORMATION
  Report Type: Report from Study
  Country: CA (occurrence: CA)
  Receive Date: 20220720
  Receipt Date: 20220803
  Transmission Date: 20221027
  Serious: Yes (Hospitalization)
  Sender: FDA-Public Use
  Company Number: CA-BRISTOL-MYERS SQUIBB COMPANY-2022-077370

PATIENT
  Age: 79 Year
  Sex: Male
  Weight: 72.00 kg

DRUGS (2)
  1. OPDIVO [Suspect]
     Active Substance: NIVOLUMAB
     Indication: Gastrooesophageal cancer
     Route: 042
     Dates: start: 20220519
  2. OPDIVO [Suspect]
     Active Substance: NIVOLUMAB
     Route: 065
     Dates: start: 20220630

REACTIONS (2)
  - Malaise [Unknown]
  - Product dose omission issue [Unknown]

NARRATIVE: CASE EVENT DATE: 20220701
